FAERS Safety Report 6377249-4 (Version None)
Quarter: 2009Q3

REPORT INFORMATION
  Report Type: 
  Country: None (occurrence: None)
  Receive Date: 20090925
  Receipt Date: 20090918
  Transmission Date: 20100115
  Serious: Yes (Other)
  Sender: FDA-Public Use
  Company Number: B0594160A

PATIENT
  Sex: Female

DRUGS (6)
  1. REQUIP XL [Suspect]
     Indication: PARKINSON'S DISEASE
     Dosage: 2MG PER DAY
     Route: 048
     Dates: start: 20080101
  2. MADOPAR [Concomitant]
     Dosage: 125MG TWICE PER DAY
  3. CITALOPRAM HYDROBROMIDE [Concomitant]
     Dosage: 10MG IN THE MORNING
  4. MIRTAZAPINE [Concomitant]
     Dosage: 45MG AT NIGHT
  5. LEVOTHYROXINE SODIUM [Concomitant]
     Dosage: 50MCG IN THE MORNING
  6. FLUDROCORTISONE [Concomitant]
     Dosage: 100MCG TWICE PER DAY

REACTIONS (3)
  - CONDITION AGGRAVATED [None]
  - MOVEMENT DISORDER [None]
  - PARKINSON'S DISEASE [None]
